FAERS Safety Report 10305223 (Version 1)
Quarter: 2014Q3

REPORT INFORMATION
  Report Type: Spontaneous
  Country: GB (occurrence: None)
  Receive Date: 20140710
  Receipt Date: 20140710
  Transmission Date: 20150326
  Serious: Yes (Other)
  Sender: FDA-Public Use
  Company Number: AUR-APL-2014-07231

PATIENT
  Age: 51 Year
  Sex: Female
  Weight: 64 kg

DRUGS (7)
  1. AMOXICILLIN+CLAVULANIC ACID (AMOXICILLIN, CLAVULANIC ACID) [Suspect]
     Active Substance: AMOXICILLIN\CLAVULANIC ACID
     Indication: INFECTION
     Route: 048
     Dates: start: 20140609, end: 20140616
  2. MULTIVITAMIN (ASCORBIC ACID, CALCIUM PANTOTHENATE, ERGOCALCIFEROL, NICOTINAMIDE, PYRIDOXINE HYDROCHLORIDE, RETINOL, RIBOFLAVIN, THIAMINE HYDROCHLORIDE) [Concomitant]
  3. MICRONOR (NORETHISTERONE) [Concomitant]
  4. MIRENA (LEVONORGESTREL) [Concomitant]
  5. IBUPROFEN (IBUPROFEN) [Concomitant]
     Active Substance: IBUPROFEN
  6. NAPROXEN (NAPROXEN) [Concomitant]
     Active Substance: NAPROXEN
  7. FERROUS FUMARATE (FERROUS FUMARATE) [Concomitant]

REACTIONS (12)
  - Rash macular [None]
  - Lip swelling [None]
  - Burning sensation [None]
  - Cough [None]
  - Angioedema [None]
  - Eyelid oedema [None]
  - Rash pruritic [None]
  - Erythema [None]
  - Peripheral swelling [None]
  - Temperature intolerance [None]
  - Dyspepsia [None]
  - Throat irritation [None]

NARRATIVE: CASE EVENT DATE: 20140619
